FAERS Safety Report 17875594 (Version 1)
Quarter: 2020Q2

REPORT INFORMATION
  Report Type: Spontaneous
  Country: US (occurrence: US)
  Receive Date: 20200609
  Receipt Date: 20200609
  Transmission Date: 20200714
  Serious: Yes (Hospitalization)
  Sender: FDA-Public Use
  Company Number: None

PATIENT
  Age: 78 Year
  Sex: Female
  Weight: 107.8 kg

DRUGS (15)
  1. NIFIDIPINE 30 MG [Concomitant]
     Dates: start: 20200527, end: 20200603
  2. PRAVASTATIN 20 MG [Concomitant]
     Active Substance: PRAVASTATIN
     Dates: start: 20200526
  3. FENTANYL INFUSION [Concomitant]
     Active Substance: FENTANYL
     Dates: start: 20200602
  4. HEPARIN INFUSION [Concomitant]
     Dates: start: 20200602, end: 20200608
  5. VASOPRESSIN INFUSION [Concomitant]
     Dates: start: 20200602, end: 20200607
  6. LANTUS 5 UNITS [Concomitant]
     Dates: start: 20200604
  7. REMDESIVIR. [Suspect]
     Active Substance: REMDESIVIR
     Indication: SARS-COV-2 TEST POSITIVE
     Route: 040
     Dates: start: 20200528, end: 20200606
  8. ASCORBIC ACID 500 MG [Concomitant]
     Dates: start: 20200526
  9. METOPROLOL SUCCINATE 25 MG [Concomitant]
     Active Substance: METOPROLOL SUCCINATE
     Dates: start: 20200527, end: 20200603
  10. DEXMEDOTOMIDINE INFUSION [Concomitant]
     Dates: start: 20200601
  11. ZINC SULFATE 220 MG [Concomitant]
     Dates: start: 20200528
  12. ENOXAPARIN 40 MG [Concomitant]
     Active Substance: ENOXAPARIN
     Dates: start: 20200526
  13. CANDESARTAN 16 MG [Concomitant]
     Active Substance: CANDESARTAN
     Dates: start: 20200526, end: 20200608
  14. METHYLPREDNISOLONE 50 MG [Concomitant]
     Dates: start: 20200602
  15. EPINEPHRINE INFUSION [Concomitant]
     Active Substance: EPINEPHRINE
     Dates: start: 20200602

REACTIONS (1)
  - Acute kidney injury [None]

NARRATIVE: CASE EVENT DATE: 20200602
